FAERS Safety Report 6611904-3 (Version None)
Quarter: 2010Q1

REPORT INFORMATION
  Report Type: 
  Country: None (occurrence: None)
  Receive Date: 20100226
  Receipt Date: 20100226
  Transmission Date: 20100710
  Serious: Yes (Hospitalization, Disabling)
  Sender: FDA-Public Use
  Company Number: None

PATIENT
  Sex: Female
  Weight: 47.7 kg

DRUGS (1)
  1. CLINDAMYCIN HYDROCHLORIDE [Suspect]
     Indication: DENTAL IMPLANTATION
     Dosage: ONE 150 MG CAPSULE EVERY 6 HRS. ORAL
     Route: 048
     Dates: start: 20091214, end: 20091217

REACTIONS (8)
  - BURNING SENSATION [None]
  - CAPSULE ISSUE [None]
  - CAUSTIC INJURY [None]
  - COUGH [None]
  - DYSPHONIA [None]
  - LARYNGEAL DISORDER [None]
  - SCAR [None]
  - SPEECH DISORDER [None]
